FAERS Safety Report 16425324 (Version 2)
Quarter: 2019Q3

REPORT INFORMATION
  Report Type: Spontaneous
  Country: US (occurrence: US)
  Receive Date: 20190613
  Receipt Date: 20190709
  Transmission Date: 20191004
  Serious: Yes (Other)
  Sender: FDA-Public Use
  Company Number: US-ABBVIE-19S-163-2817410-00

PATIENT
  Age: 56 Year
  Sex: Male
  Weight: 72.64 kg

DRUGS (5)
  1. CREON [Suspect]
     Active Substance: PANCRELIPASE AMYLASE\PANCRELIPASE LIPASE\PANCRELIPASE PROTEASE
     Indication: PANCREATITIS CHRONIC
     Dosage: FOUR CAPSULES
     Route: 048
     Dates: start: 2015
  2. CIALIS [Concomitant]
     Active Substance: TADALAFIL
     Indication: PRODUCT USED FOR UNKNOWN INDICATION
     Dosage: 1 PO QD
     Route: 048
  3. SUDAFED [Concomitant]
     Active Substance: PSEUDOEPHEDRINE HYDROCHLORIDE
     Indication: PRODUCT USED FOR UNKNOWN INDICATION
     Dosage: AS NEEDED
     Route: 048
  4. ANASTROZOLE. [Concomitant]
     Active Substance: ANASTROZOLE
     Indication: PRODUCT USED FOR UNKNOWN INDICATION
     Dosage: ORAL - 1 TAB 1 A WK
     Route: 048
  5. TESTOSTERONE CYPIONATE. [Concomitant]
     Active Substance: TESTOSTERONE CYPIONATE
     Indication: PRODUCT USED FOR UNKNOWN INDICATION
     Dosage: 2 CE, ORAL - Q 2 WKS, POWDER
     Route: 048

REACTIONS (7)
  - Unevaluable event [Unknown]
  - Pancreatitis chronic [Unknown]
  - Frequent bowel movements [Unknown]
  - Venous operation [Unknown]
  - Diarrhoea [Recovered/Resolved]
  - Inappropriate schedule of product administration [Unknown]
  - Pain [Unknown]

NARRATIVE: CASE EVENT DATE: 20190607
